FAERS Safety Report 5041689-6 (Version None)
Quarter: 2006Q2

REPORT INFORMATION
  Report Type: 
  Country: None (occurrence: None)
  Receive Date: 20060630
  Receipt Date: 20060620
  Transmission Date: 20061013
  Serious: Yes (Other)
  Sender: FDA-Public Use
  Company Number: 2006078164

PATIENT
  Age: 80 Year
  Sex: Female
  Weight: 59.8748 kg

DRUGS (8)
  1. XALATAN [Suspect]
     Indication: GLAUCOMA
     Dosage: 2 DROP (1 DROP, 2 IN 1 D), OPHTHALMIC
     Route: 047
  2. COREG [Concomitant]
  3. ASPIRIN [Concomitant]
  4. NEXIUM [Concomitant]
  5. FUROSEMIDE [Concomitant]
  6. POTASSIUM CHLRORIDE (POTASSIUM CHLORIDE) [Concomitant]
  7. IRON (IRON)_ [Concomitant]
  8. COZAAR (LOSARTAN POTASSIUN) [Concomitant]

REACTIONS (1)
  - MYOCARDIAL INFARCTION [None]
